FAERS Safety Report 5120640-4 (Version None)
Quarter: 2006Q4

REPORT INFORMATION
  Report Type: 
  Country: None (occurrence: None)
  Receive Date: 20061002
  Receipt Date: 20060915
  Transmission Date: 20070319
  Serious: Yes (Other)
  Sender: FDA-Public Use
  Company Number: PAR_0823_2006

PATIENT
  Age: 55 Year
  Sex: Male

DRUGS (4)
  1. IBUPROFEN [Suspect]
     Indication: OSTEOARTHRITIS
     Dosage: 600 MG QDAY UNK
  2. IBUPROFEN [Suspect]
     Indication: OSTEOARTHRITIS
     Dosage: 600 MG ONCE UNK
  3. ASPIRIN [Concomitant]
  4. MEFENAMIC ACID [Concomitant]

REACTIONS (8)
  - CSF CELL COUNT INCREASED [None]
  - CSF PROTEIN INCREASED [None]
  - DIZZINESS [None]
  - HEADACHE [None]
  - INFLUENZA LIKE ILLNESS [None]
  - MENINGISM [None]
  - MYALGIA [None]
  - PYREXIA [None]
